FAERS Safety Report 20629376 (Version 1)
Quarter: 2022Q1

REPORT INFORMATION
  Report Type: Spontaneous
  Country: JP (occurrence: JP)
  Receive Date: 20220323
  Receipt Date: 20220323
  Transmission Date: 20220423
  Serious: Yes (Other)
  Sender: FDA-Public Use
  Company Number: JP-ANIPHARMA-2022-JP-000080

PATIENT
  Age: 39 Year
  Sex: Female

DRUGS (2)
  1. LITHIUM [Suspect]
     Active Substance: LITHIUM
     Indication: Bipolar disorder
     Dosage: 200 MG DAILY
  2. FLUNITRAZEPAM [Concomitant]
     Active Substance: FLUNITRAZEPAM

REACTIONS (1)
  - Thyroiditis [Recovered/Resolved]
